FAERS Safety Report 20633253 (Version 1)
Quarter: 2022Q1

REPORT INFORMATION
  Report Type: Spontaneous
  Country: US (occurrence: US)
  Receive Date: 20220324
  Receipt Date: 20220324
  Transmission Date: 20220423
  Serious: Yes (Other)
  Sender: FDA-Public Use
  Company Number: US-AMGEN-USASP2022050295

PATIENT
  Age: 87 Year
  Sex: Female
  Weight: 46.259 kg

DRUGS (2)
  1. XGEVA [Suspect]
     Active Substance: DENOSUMAB
     Indication: Product used for unknown indication
     Dosage: UNK
     Route: 065
  2. REVLIMID [Suspect]
     Active Substance: LENALIDOMIDE
     Indication: Plasma cell myeloma
     Dosage: 10 MILLIGRAM 21/28 DAYS
     Route: 048
     Dates: start: 20191213

REACTIONS (4)
  - Osteonecrosis [Unknown]
  - Osteonecrosis of jaw [Unknown]
  - Fluid retention [Unknown]
  - Diarrhoea [Unknown]
